APPROVED DRUG PRODUCT: BUDESONIDE
Active Ingredient: BUDESONIDE
Strength: 3MG
Dosage Form/Route: CAPSULE, DELAYED RELEASE;ORAL
Application: A207367 | Product #001 | TE Code: AB
Applicant: RISING PHARMA HOLDINGS INC
Approved: Apr 7, 2017 | RLD: No | RS: No | Type: RX